FAERS Safety Report 10085862 (Version 1)
Quarter: 2014Q2

REPORT INFORMATION
  Report Type: Spontaneous
  Country: JP (occurrence: JP)
  Receive Date: 20140418
  Receipt Date: 20140418
  Transmission Date: 20141212
  Serious: Yes (Other)
  Sender: FDA-Public Use
  Company Number: JP-TEVA-474887ISR

PATIENT
  Sex: Male

DRUGS (10)
  1. CARBOPLATIN [Suspect]
     Indication: HAEMANGIOMA-THROMBOCYTOPENIA SYNDROME
     Dosage: 15 MG/KG FOR 2 MONTHLY CYCLES
     Route: 065
  2. PREDNISOLONE [Suspect]
     Indication: HAEMANGIOMA-THROMBOCYTOPENIA SYNDROME
     Route: 042
  3. PREDNISOLONE [Suspect]
     Indication: HAEMANGIOMA-THROMBOCYTOPENIA SYNDROME
     Route: 048
  4. CYCLOPHOSPHAMIDE [Suspect]
     Indication: HAEMANGIOMA-THROMBOCYTOPENIA SYNDROME
     Dosage: 40 MG/KG FOR 2 MONTHLY CYCLES
     Route: 065
  5. PIRARUBICIN [Suspect]
     Indication: HAEMANGIOMA-THROMBOCYTOPENIA SYNDROME
     Dosage: 1.3 MG/KG FOR 2 MONTHLY CYCLES
     Route: 065
  6. VINCRISTINE [Suspect]
     Indication: HAEMANGIOMA-THROMBOCYTOPENIA SYNDROME
     Dosage: 0.05 MG/KG FOR 3 MONTHLY CYCLES
     Route: 065
  7. DACTINOMYCIN [Suspect]
     Indication: HAEMANGIOMA-THROMBOCYTOPENIA SYNDROME
     Dosage: 0.015 MG/KG/DAY, 4 DAY, FOR 3 MONTHLY CYCLES; THEN REGIMEN SWITCHED TO 3 WEEKLY
     Route: 065
  8. DACTINOMYCIN [Suspect]
     Indication: HAEMANGIOMA-THROMBOCYTOPENIA SYNDROME
     Dosage: 0.015 MG/KG/DAY, 4 DAY, FOR 3 WEEKLY CYCLES
     Route: 065
  9. PROPRANOLOL [Concomitant]
     Indication: HAEMANGIOMA-THROMBOCYTOPENIA SYNDROME
     Route: 065
  10. INTERFERON [Concomitant]
     Indication: HAEMANGIOMA-THROMBOCYTOPENIA SYNDROME
     Route: 065

REACTIONS (5)
  - Neutropenia [Unknown]
  - Growth retardation [Unknown]
  - Osteoporosis [Unknown]
  - Constipation [Unknown]
  - Decreased appetite [Unknown]
